FAERS Safety Report 6268955-0 (Version None)
Quarter: 2009Q3

REPORT INFORMATION
  Report Type: 
  Country: None (occurrence: None)
  Receive Date: 20090714
  Receipt Date: 20090714
  Transmission Date: 20100115
  Serious: Yes (Disabling)
  Sender: FDA-Public Use
  Company Number: None

PATIENT
  Age: 61 Year
  Sex: Male
  Weight: 111.1313 kg

DRUGS (2)
  1. SINGULAIR [Suspect]
     Indication: ASTHMA
     Dosage: 1 TABLET DAILY BUCCAL    7.5 MONTHS
     Route: 002
     Dates: start: 20090101, end: 20090713
  2. SINGULAIR [Suspect]
     Indication: PROPHYLAXIS
     Dosage: 1 TABLET DAILY BUCCAL    7.5 MONTHS
     Route: 002
     Dates: start: 20090101, end: 20090713

REACTIONS (8)
  - AGITATION [None]
  - ANGER [None]
  - CONFUSIONAL STATE [None]
  - DEPRESSION [None]
  - FEELING ABNORMAL [None]
  - MENTAL STATUS CHANGES [None]
  - OBSESSIVE-COMPULSIVE DISORDER [None]
  - SUICIDAL IDEATION [None]
